FAERS Safety Report 20097148 (Version 2)
Quarter: 2021Q4

REPORT INFORMATION
  Report Type: Spontaneous
  Country: VE (occurrence: VE)
  Receive Date: 20211122
  Receipt Date: 20211125
  Transmission Date: 20220303
  Serious: Yes (Death, Hospitalization, Other)
  Sender: FDA-Public Use
  Company Number: VE-TAKEDA-2021TUS072941

PATIENT
  Sex: Female

DRUGS (1)
  1. ICLUSIG [Suspect]
     Active Substance: PONATINIB
     Indication: Chronic myeloid leukaemia
     Dosage: 45 MILLIGRAM
     Route: 065

REACTIONS (3)
  - Death [Fatal]
  - SARS-CoV-2 test positive [Unknown]
  - Arthralgia [Unknown]
